FAERS Safety Report 16963346 (Version 5)
Quarter: 2020Q1

REPORT INFORMATION
  Report Type: Report from Study
  Country: None (occurrence: TR)
  Receive Date: 20191025
  Receipt Date: 20200106
  Transmission Date: 20200409
  Serious: Yes (Hospitalization, Other)
  Sender: FDA-Public Use
  Company Number: TR-ABBVIE-19K-161-2974935-00

PATIENT
  Age: 65 Year
  Sex: Male
  Weight: 66 kg

DRUGS (2)
  1. DUODOPA [Suspect]
     Active Substance: CARBIDOPA\LEVODOPA
     Indication: PARKINSON^S DISEASE
     Dosage: MORNING DOSE (ML): 5.80 CONTINUOUS DOSE (ML): 2.50 EXTRA DOSE (ML): 1.50
     Route: 050
     Dates: start: 20171124, end: 20191022
  2. DUODOPA [Suspect]
     Active Substance: CARBIDOPA\LEVODOPA
     Dosage: MORNING DOSE (ML): 5.80 CONTINUOUS DOSE (ML): 2.50 EXTRA DOSE (ML): 1.50
     Route: 050
     Dates: start: 20191028

REACTIONS (4)
  - Subdural haematoma [Recovered/Resolved]
  - Blindness unilateral [Recovered/Resolved]
  - Fall [Recovered/Resolved]
  - Vomiting [Recovered/Resolved]

NARRATIVE: CASE EVENT DATE: 20191020
